FAERS Safety Report 21239019 (Version 1)
Quarter: 2022Q3

REPORT INFORMATION
  Report Type: Spontaneous
  Country: FR (occurrence: FR)
  Receive Date: 20220822
  Receipt Date: 20220822
  Transmission Date: 20221027
  Serious: Yes (Other)
  Sender: FDA-Public Use
  Company Number: None

PATIENT
  Age: 74 Year
  Sex: Male
  Weight: 81 kg

DRUGS (24)
  1. ATORVASTATIN CALCIUM [Suspect]
     Active Substance: ATORVASTATIN CALCIUM
     Indication: Dyslipidaemia
     Dosage: 80 MG, 0-0-1
     Route: 048
     Dates: end: 20220227
  2. ATORVASTATIN CALCIUM [Suspect]
     Active Substance: ATORVASTATIN CALCIUM
     Dosage: 10 MG
     Route: 048
  3. INDAPAMIDE [Suspect]
     Active Substance: INDAPAMIDE
     Indication: Myocardial infarction
     Dosage: 1.5 MG/ 1X DAY
     Route: 048
     Dates: end: 20220227
  4. METFORMIN HYDROCHLORIDE [Suspect]
     Active Substance: METFORMIN HYDROCHLORIDE
     Indication: Insulin-requiring type 2 diabetes mellitus
     Dosage: 2000 MG, EVERY DAY
     Route: 048
     Dates: end: 20220228
  5. XARELTO [Suspect]
     Active Substance: RIVAROXABAN
     Dosage: 20 MG, 1X/DAY
     Route: 048
     Dates: start: 20220227
  6. IOMERON [Suspect]
     Active Substance: IOMEPROL
     Indication: Scan with contrast
     Dosage: 182 ML
     Route: 042
     Dates: start: 20220225, end: 20220225
  7. PERINDOPRIL [Suspect]
     Active Substance: PERINDOPRIL
     Indication: Myocardial infarction
     Dosage: 8 MG, QD
     Route: 048
     Dates: end: 20220227
  8. GLICLAZIDE [Suspect]
     Active Substance: GLICLAZIDE
     Indication: Insulin-requiring type 2 diabetes mellitus
     Dosage: 60 MG, 1X/DAY
     Route: 048
     Dates: end: 20220228
  9. TICAGRELOR [Suspect]
     Active Substance: TICAGRELOR
     Indication: Anticoagulant therapy
     Dosage: 180 MG
     Route: 048
     Dates: start: 20220225, end: 20220227
  10. PLAVIX [Suspect]
     Active Substance: CLOPIDOGREL BISULFATE
     Dosage: 75 MG
     Route: 048
  11. PLAVIX [Suspect]
     Active Substance: CLOPIDOGREL BISULFATE
     Dosage: 300 MG
     Route: 048
     Dates: start: 20220227, end: 20220228
  12. AMIODARONE [Suspect]
     Active Substance: AMIODARONE
     Dosage: 800 MG, 1X/DAY
     Route: 048
     Dates: start: 20220227
  13. HEPARIN SODIUM [Suspect]
     Active Substance: HEPARIN SODIUM
     Indication: Thrombosis prophylaxis
     Dosage: 24000 IU, 1X/DAY
     Route: 042
     Dates: start: 20220225, end: 20220227
  14. HUMALOG [Concomitant]
     Active Substance: INSULIN LISPRO
     Dosage: DEPENDING ON BLOOD GLUCOSE
     Route: 058
  15. KARDEGIC [Concomitant]
     Active Substance: ASPIRIN DL-LYSINE
     Dosage: KARDEGIC 75 MG, POWDER FOR ORAL SOLUTION IN SACHET-DOSE (1-0-0)
     Route: 048
  16. LANSOPRAZOLE [Concomitant]
     Active Substance: LANSOPRAZOLE
     Route: 048
  17. INDAPAMIDE\PERINDOPRIL ARGININE [Concomitant]
     Active Substance: INDAPAMIDE\PERINDOPRIL ARGININE
     Dosage: 10 MG/2.5 MG, 1-0-0
     Route: 048
  18. DOLIPRANE [Concomitant]
     Active Substance: ACETAMINOPHEN
     Dosage: 1000 MG
     Route: 048
  19. ALBUTEROL SULFATE [Concomitant]
     Active Substance: ALBUTEROL SULFATE
     Dosage: 100 UG, AS NEEDED (INHALED, IF NECESSARY)
     Route: 055
  20. METFORMIN HYDROCHLORIDE\VILDAGLIPTIN [Concomitant]
     Active Substance: METFORMIN HYDROCHLORIDE\VILDAGLIPTIN
     Dosage: 50 MG/1000 MG,1-0-1
     Route: 048
  21. INSULIN GLARGINE [Concomitant]
     Active Substance: INSULIN GLARGINE
     Dosage: 14 IU, 1X/DAY
     Route: 058
  22. BECLOMETASONE TEVA [Concomitant]
     Dosage: INHALED, 1-0-1, DOSE, SOLUTION FOR INHALATION SOLUTION IN PRESSURISED BOTTLE
     Route: 055
  23. FOLIC ACID [Concomitant]
     Active Substance: FOLIC ACID
     Dosage: 5 MG, 1X/DAY (1-0-0)
     Route: 048
  24. VILDAGLIPTIN [Concomitant]
     Active Substance: VILDAGLIPTIN

REACTIONS (1)
  - Acute kidney injury [Recovered/Resolved]
